FAERS Safety Report 19132215 (Version 1)
Quarter: 2021Q2

REPORT INFORMATION
  Report Type: Spontaneous
  Country: GB (occurrence: GB)
  Receive Date: 20210414
  Receipt Date: 20210414
  Transmission Date: 20210717
  Serious: Yes (Other)
  Sender: FDA-Public Use
  Company Number: GB-CELLTRION INC.-2021GB003704

PATIENT

DRUGS (2)
  1. REMSIMA [Suspect]
     Active Substance: INFLIXIMAB
     Indication: RHEUMATOID ARTHRITIS
     Dosage: 120MG PREFILLED PEN, FORTIGHTLY (EVERY 2 WEEKS)
     Route: 058
  2. COVID?19 VACCINE NOS. [Suspect]
     Active Substance: COVID-19 VACCINE NOS
     Indication: COVID-19
     Dosage: 2ND COVID VACCINE

REACTIONS (3)
  - Condition aggravated [Recovering/Resolving]
  - COVID-19 [Recovered/Resolved]
  - Intentional dose omission [Unknown]
